FAERS Safety Report 19945083 (Version 1)
Quarter: 2021Q4

REPORT INFORMATION
  Report Type: Spontaneous
  Country: AT (occurrence: AT)
  Receive Date: 20211011
  Receipt Date: 20211011
  Transmission Date: 20220303
  Serious: Yes (Hospitalization, Other)
  Sender: FDA-Public Use
  Company Number: AT-ABBVIE-21K-009-4109661-00

PATIENT
  Sex: Male

DRUGS (18)
  1. VALPROIC ACID [Suspect]
     Active Substance: VALPROIC ACID
     Indication: Product used for unknown indication
     Route: 065
  2. QUETIAPINE FUMARATE [Suspect]
     Active Substance: QUETIAPINE FUMARATE
     Indication: Product used for unknown indication
     Dosage: SLOWLY INCREASED
     Route: 065
  3. QUETIAPINE FUMARATE [Suspect]
     Active Substance: QUETIAPINE FUMARATE
     Dosage: IN THE EVENING
     Route: 065
  4. RIVASTIGMINE [Suspect]
     Active Substance: RIVASTIGMINE
     Indication: Product used for unknown indication
     Route: 065
  5. RISPERIDONE [Suspect]
     Active Substance: RISPERIDONE
     Indication: Product used for unknown indication
     Route: 065
  6. RISPERIDONE [Suspect]
     Active Substance: RISPERIDONE
     Route: 065
  7. RISPERIDONE [Suspect]
     Active Substance: RISPERIDONE
     Route: 065
  8. MIRTAZAPINE [Suspect]
     Active Substance: MIRTAZAPINE
     Indication: Insomnia
     Route: 065
  9. OXAZEPAM [Suspect]
     Active Substance: OXAZEPAM
     Indication: Product used for unknown indication
     Route: 065
  10. LORAZEPAM [Suspect]
     Active Substance: LORAZEPAM
     Indication: Product used for unknown indication
     Route: 065
  11. PREGABALIN [Suspect]
     Active Substance: PREGABALIN
     Indication: Product used for unknown indication
     Route: 048
  12. PREGABALIN [Suspect]
     Active Substance: PREGABALIN
     Route: 048
  13. PIRACETAM [Suspect]
     Active Substance: PIRACETAM
     Indication: Product used for unknown indication
     Route: 065
  14. CEREBROLYSIN [Suspect]
     Active Substance: CEREBROLYSIN
     Indication: Product used for unknown indication
     Route: 065
  15. RISPERDAL [Suspect]
     Active Substance: RISPERIDONE
     Indication: Product used for unknown indication
     Route: 065
  16. ESCITALOPRAM [Suspect]
     Active Substance: ESCITALOPRAM OXALATE
     Indication: Affective disorder
     Route: 065
  17. ESCITALOPRAM [Suspect]
     Active Substance: ESCITALOPRAM OXALATE
     Route: 065
  18. NALTREXONE [Suspect]
     Active Substance: NALTREXONE
     Indication: Product used for unknown indication
     Route: 065

REACTIONS (22)
  - Urinary incontinence [Unknown]
  - Chills [Unknown]
  - Tremor [Unknown]
  - Therapeutic product effect incomplete [Unknown]
  - Dementia with Lewy bodies [Unknown]
  - Dementia [Unknown]
  - Korsakoff^s syndrome [Unknown]
  - Alcoholism [Unknown]
  - Cognitive disorder [Unknown]
  - Hallucination, visual [Not Recovered/Not Resolved]
  - Apraxia [Unknown]
  - Hallucination, visual [Not Recovered/Not Resolved]
  - Restlessness [Unknown]
  - Depressed mood [Unknown]
  - Mania [Unknown]
  - Aggression [Unknown]
  - Sleep disorder [Unknown]
  - Behaviour disorder [Recovering/Resolving]
  - Parkinsonism [Unknown]
  - Agitation [Unknown]
  - Dysphoria [Unknown]
  - Middle insomnia [Unknown]

NARRATIVE: CASE EVENT DATE: 20180101
